FAERS Safety Report 9554318 (Version 1)
Quarter: 2013Q3

REPORT INFORMATION
  Report Type: Spontaneous
  Country: GB (occurrence: None)
  Receive Date: 20130726
  Receipt Date: 20130726
  Transmission Date: 20140515
  Serious: Yes (Hospitalization)
  Sender: FDA-Public Use
  Company Number: E2B_00000887

PATIENT
  Age: 47 Year
  Sex: Female

DRUGS (9)
  1. QUETIAPINE (UNKNOWN) [Suspect]
     Indication: PRODUCT USED FOR UNKNOWN INDICATION
  2. ATORVASTATIN (UNKNOWN) [Suspect]
     Indication: HEREDITARY DISORDER
     Dosage: 20 MG (20 MG, DAILY), UNKNOWN
     Dates: start: 20121218
  3. PREDNISOLONE (UNKNOWN) [Concomitant]
  4. CHLORPHENAMINE (PIRITON) (UNKNOWN) [Concomitant]
  5. ESCITALOPRAM (CIPRALEX) (UNKNOWN) [Concomitant]
  6. CYANOCOBALAMIN (UNKNOWN) [Concomitant]
  7. CALCIUM AND VITAMIN D (UNKNOWN) [Concomitant]
  8. FOLIC ACID (UNKNOWN) [Concomitant]
  9. LITHIUM (UNKNOWN) [Concomitant]

REACTIONS (3)
  - Swelling face [None]
  - Dyspnoea [None]
  - Loss of consciousness [None]
